FAERS Safety Report 7162881 (Version 9)
Quarter: 2012Q4

REPORT INFORMATION
  Report Type: 
  Country: US (occurrence: US)
  Receive Date: 20091030
  Receipt Date: 20121116
  Transmission Date: 20130627
  Serious: Yes (Life-Threatening, Hospitalization, Disabling, Other)
  Sender: FDA-Public Use
  Company Number: US-BAYER-200937025NA

PATIENT
  Age: 45 Year
  Sex: Female
  Weight: 77 kg

DRUGS (57)
  1. YASMIN [Suspect]
     Indication: ORAL CONTRACEPTIVE
     Dosage: UNK
     Route: 048
     Dates: start: 2002, end: 2008
  2. YASMIN [Suspect]
     Indication: PREMENSTRUAL SYNDROME
  3. YASMIN [Suspect]
     Indication: ACNE
  4. YASMIN [Suspect]
     Indication: POLYCYSTIC OVARY
  5. LEVOXYL [Concomitant]
     Indication: DYSFUNCTION THYROID
     Dosage: USED LEVOKYL OR SYNTHROID
     Route: 042
     Dates: start: 1992, end: 2010
  6. LEVOXYL [Concomitant]
     Indication: GOITER NODULAR
  7. SYNTHROID [Concomitant]
     Indication: DYSFUNCTION THYROID
     Dosage: USED LEVOKYL OR SYNTHROID
     Route: 065
     Dates: start: 1992, end: 2010
  8. SYNTHROID [Concomitant]
     Indication: GOITER NODULAR
  9. SYNTHROID [Concomitant]
     Indication: HYPOTHYROIDISM
  10. WARFARIN [Concomitant]
     Route: 065
     Dates: start: 20081227
  11. WARFARIN [Concomitant]
     Dosage: DOSING 3 MG DAILY EXCEPT THURSDAYS
     Route: 065
     Dates: start: 20090129
  12. ADVIL [Concomitant]
     Dates: start: 1999, end: 2008
  13. ANTIBIOTICS [Concomitant]
  14. SPIRONOLACTONE [Concomitant]
     Indication: UNEVALUABLE EVENT
     Route: 065
     Dates: start: 2004
  15. SPIRONOLACTONE [Concomitant]
     Indication: UNEVALUABLE EVENT
     Dosage: TWO TABLETS PER DAY
     Route: 065
     Dates: start: 20081109
  16. EFFEXOR XR [Concomitant]
     Indication: PREMENSTRUAL SYNDROME
     Dosage: PHARMACY RECORDS: DEC-2008. OTHER INDICATION: ANXIETY.
     Route: 065
     Dates: start: 2000
  17. EFFEXOR XR [Concomitant]
     Indication: FEELING SAD
  18. EFFEXOR XR [Concomitant]
     Indication: DEPRESSION
  19. XANAX [Concomitant]
     Indication: TROUBLE FALLING ASLEEP
     Dosage: ??-DEC-2008
     Route: 065
     Dates: start: 2000
  20. XANAX [Concomitant]
     Indication: ANXIETY
  21. RESTASIS [Concomitant]
     Indication: LACRIMATION DISORDER
     Route: 065
     Dates: start: 20080730
  22. PROTONIX [Concomitant]
     Indication: GERD
     Dosage: PHARMACY RECORDS: DEC-2008
     Route: 065
     Dates: start: 20081208
  23. PROTONIX [Concomitant]
     Indication: GASTRITIS
  24. MELOXICAM [Concomitant]
     Indication: INTERVERTEBRAL DISC BULGING
     Dosage: PHARMACY RECORDS: DEC-2008
     Route: 065
     Dates: start: 20081120
  25. MELOXICAM [Concomitant]
     Indication: BACK PAIN
  26. CYCLOBENZAPRINE [Concomitant]
     Indication: BACK PAIN
     Dates: start: 20081120
  27. AMITIZA [Concomitant]
     Indication: IRRITABLE BOWEL SYNDROME
     Dosage: PHARMACY RECORDS: DEC-2008
     Route: 065
     Dates: start: 20081205
  28. BUDEPRION [Concomitant]
     Indication: PREMENSTRUAL SYNDROME
     Dosage: PHARMACY RECORDS: DEC-2008
     Route: 065
     Dates: start: 20081205, end: 20081210
  29. BUDEPRION [Concomitant]
     Indication: FEELING SAD
  30. ACETAMINOPHEN W/PROPOXYPHENE [Concomitant]
     Indication: PAIN NOS
     Dosage: PHARMACY RECORDS: DEC-2008
     Route: 065
     Dates: start: 20081219
  31. PENICILLIN V POTASSIUM [Concomitant]
     Indication: STREPTOCOCCAL SORE THROAT
     Route: 065
  32. LORAZEPAM [Concomitant]
     Indication: ANXIETY
  33. ESOMEPRAZOLE [Concomitant]
     Route: 042
  34. DILAUDID [Concomitant]
     Indication: PAIN NOS
     Route: 065
  35. DURAGESIC [Concomitant]
     Indication: PAIN NOS
     Route: 065
  36. PERCOCET [Concomitant]
     Indication: PAIN NOS
     Route: 065
  37. COLACE [Concomitant]
     Indication: CONSTIPATION PROPHYLAXIS
     Route: 065
  38. BACTRIM [Concomitant]
     Indication: URINARY TRACT INFECTION
     Route: 065
  39. HYDROCODONE W/ACETAMINOPHEN [Concomitant]
     Indication: PAIN NOS
  40. MIRALAX [Concomitant]
     Indication: LAXATIVE SUPPORTIVE CARE
     Route: 065
  41. ASPIRIN [Concomitant]
     Route: 065
  42. AMBIEN [Concomitant]
     Route: 065
  43. ZOLOFT [Concomitant]
     Route: 065
  44. MERIDIA [Concomitant]
     Indication: LOSS OF WEIGHT
     Dosage: 15 mg, QD
     Route: 065
     Dates: start: 200703, end: 2009
  45. LEXAPRO [Concomitant]
     Dosage: PHARMACY RECORDS: DEC-2008
     Route: 065
  46. NASONEX [Concomitant]
     Dosage: PHARMACY RECORDS: 2007, DEC-2008
     Route: 065
  47. FLEXERIL [Concomitant]
     Dosage: PHARMACY RECORDS: DEC-2008
     Route: 065
  48. MOBIC [Concomitant]
     Dosage: PHARMACY RECORDS: DEC-2008
     Route: 065
  49. WELLBUTRIN [Concomitant]
     Dosage: PHARMACY RECORDS: DEC-2008
     Route: 065
  50. UNKNOWN DRUG [Concomitant]
     Indication: HEADACHE
     Route: 065
  51. SERTRALINE HYDROCHLORIDE [Concomitant]
     Dosage: PHARMACY RECORDS: JAN-2009
     Route: 065
  52. UNKNOWN DRUG [Concomitant]
     Indication: ORAL CONTRACEPTION
  53. CELEBREX [Concomitant]
  54. PROPOXYPHENE [Concomitant]
     Dosage: PHARMACY RECORDS: DEC-2008
     Route: 065
     Dates: start: 20081219
  55. PENICILLIN VK [Concomitant]
     Route: 065
  56. ESOMEPRAZOLE [Concomitant]
     Route: 042
  57. GOLYTELY [MACROGOL,KCL,NA BICARB,NACL,NA+ SULF] [Concomitant]

REACTIONS (39)
  - Pulmonary embolism [Unknown]
  - Pain [Unknown]
  - Anxiety [Unknown]
  - Deep vein thrombosis [Recovering/Resolving]
  - Pain in extremity [Recovering/Resolving]
  - Skin discolouration [Recovering/Resolving]
  - Varicose vein [Recovering/Resolving]
  - Mobility decreased [Recovering/Resolving]
  - Thrombosis [Unknown]
  - Post thrombotic syndrome [Not Recovered/Not Resolved]
  - Mobility decreased [Not Recovered/Not Resolved]
  - Impaired driving ability [Not Recovered/Not Resolved]
  - Pain [Not Recovered/Not Resolved]
  - Swelling [Not Recovered/Not Resolved]
  - Skin warm [Not Recovered/Not Resolved]
  - Skin atrophy [Not Recovered/Not Resolved]
  - Skin turgor decreased [Not Recovered/Not Resolved]
  - Disseminated intravascular coagulation [Recovering/Resolving]
  - Dehydration [Recovering/Resolving]
  - Platelet count decreased [Recovering/Resolving]
  - Pleural effusion [Recovering/Resolving]
  - Pelvic haematoma [Unknown]
  - Postoperative ileus [Unknown]
  - Affective disorder [Unknown]
  - Anxiety [Unknown]
  - Tearfulness [Unknown]
  - Confusional state [Unknown]
  - Conversion disorder [Unknown]
  - Tension [Unknown]
  - Fear [Unknown]
  - Affect lability [Unknown]
  - Inappropriate affect [Unknown]
  - Agitation [Unknown]
  - Depressed mood [Unknown]
  - Conversion disorder [Unknown]
  - Retroperitoneal haemorrhage [Unknown]
  - Venous insufficiency [Recovering/Resolving]
  - Vaginal haemorrhage [None]
  - Cholecystitis [None]
